FAERS Safety Report 9771217 (Version 1)
Quarter: 2013Q4

REPORT INFORMATION
  Report Type: Spontaneous
  Country: DK (occurrence: FR)
  Receive Date: 20131218
  Receipt Date: 20131218
  Transmission Date: 20140711
  Serious: Yes (Hospitalization)
  Sender: FDA-Public Use
  Company Number: FR-FRI-1000052349

PATIENT
  Age: 86 Year
  Sex: Male

DRUGS (9)
  1. ESCITALOPRAM [Suspect]
     Dosage: 10 MG
     Route: 048
     Dates: start: 201306, end: 20130928
  2. ESCITALOPRAM [Interacting]
     Dosage: 5 MG
     Route: 048
  3. TRAMADOL BIOGARAN [Interacting]
     Dosage: 2 DF
     Route: 048
     Dates: start: 20130923, end: 20130928
  4. PARACETAMOL [Concomitant]
     Indication: ARTHRALGIA
     Route: 048
     Dates: start: 20130923
  5. KARDEGIC [Concomitant]
     Indication: ARTHRALGIA
     Dosage: 1 DF
     Route: 048
  6. AMLOR [Concomitant]
     Dosage: 1 DF
     Route: 048
  7. TAHOR [Concomitant]
     Dosage: 1 DF
     Route: 048
  8. XANAX [Concomitant]
     Dosage: 1 DF
     Route: 048
  9. ALLOPURINOL [Concomitant]
     Route: 048

REACTIONS (5)
  - Hallucination [Recovered/Resolved]
  - Abnormal behaviour [Recovered/Resolved]
  - Ataxia [Recovered/Resolved]
  - Abnormal dreams [Recovered/Resolved]
  - Drug interaction [Recovered/Resolved]
